FAERS Safety Report 16138087 (Version 2)
Quarter: 2019Q2

REPORT INFORMATION
  Report Type: Spontaneous
  Country: CN (occurrence: CN)
  Receive Date: 20190330
  Receipt Date: 20190418
  Transmission Date: 20190711
  Serious: Yes (Hospitalization)
  Sender: FDA-Public Use
  Company Number: CN-UNITED THERAPEUTICS-UNT-2019-005391

PATIENT
  Sex: Female

DRUGS (5)
  1. REMODULIN [Suspect]
     Active Substance: TREPROSTINIL
     Indication: PULMONARY ARTERIAL HYPERTENSION
     Dosage: 0.00125 ?G/KG, CONTINUING
     Route: 058
  2. PREDNISONE. [Concomitant]
     Active Substance: PREDNISONE
     Indication: PRODUCT USED FOR UNKNOWN INDICATION
     Dosage: 60 MG, QD (PER DAY)
     Route: 065
  3. CYCLOPHOSPHAMIDE. [Concomitant]
     Active Substance: CYCLOPHOSPHAMIDE
     Indication: PRODUCT USED FOR UNKNOWN INDICATION
     Dosage: 0.4 G, QWK
     Route: 042
  4. OXYGEN. [Concomitant]
     Active Substance: OXYGEN
     Indication: PRODUCT USED FOR UNKNOWN INDICATION
     Dosage: UNK
  5. DEXAMETHASONE. [Concomitant]
     Active Substance: DEXAMETHASONE
     Indication: MATERNAL THERAPY TO ENHANCE FOETAL LUNG MATURITY
     Dosage: 6 MG, Q12H (4 TIMES)
     Route: 042

REACTIONS (10)
  - Constipation [Unknown]
  - Infusion site erythema [Recovered/Resolved]
  - Blood pressure decreased [Recovering/Resolving]
  - Infusion site extravasation [Recovered/Resolved]
  - Diarrhoea [Recovering/Resolving]
  - Exposure during pregnancy [Unknown]
  - Oedema peripheral [Unknown]
  - Infusion site pain [Recovered/Resolved]
  - Heart rate increased [Recovering/Resolving]
  - Headache [Recovering/Resolving]
